FAERS Safety Report 5523243-2 (Version None)
Quarter: 2007Q4

REPORT INFORMATION
  Report Type: 
  Country: None (occurrence: None)
  Receive Date: 20071121
  Receipt Date: 20071112
  Transmission Date: 20080405
  Serious: Yes (Hospitalization)
  Sender: FDA-Public Use
  Company Number: FR-JNJFOC-20071104651

PATIENT
  Sex: Female

DRUGS (2)
  1. REMICADE [Suspect]
     Route: 042
  2. REMICADE [Suspect]
     Indication: COLITIS ULCERATIVE
     Route: 042

REACTIONS (10)
  - BACK PAIN [None]
  - BLOOD PRESSURE DECREASED [None]
  - CHEST PAIN [None]
  - ERYTHEMA [None]
  - HYPERGLYCAEMIA [None]
  - INFUSION RELATED REACTION [None]
  - NAUSEA [None]
  - OEDEMA PERIPHERAL [None]
  - PYREXIA [None]
  - SWOLLEN TONGUE [None]
